FAERS Safety Report 21982541 (Version 4)
Quarter: 2023Q1

REPORT INFORMATION
  Report Type: Report from Study
  Country: CA (occurrence: None)
  Receive Date: 20230213
  Receipt Date: 20230314
  Transmission Date: 20230418
  Serious: Yes (Hospitalization)
  Sender: FDA-Public Use
  Company Number: CA-ROCHE-3171330

PATIENT
  Age: 85 Year
  Sex: Male
  Weight: 70.1 kg

DRUGS (44)
  1. MOSUNETUZUMAB [Suspect]
     Active Substance: MOSUNETUZUMAB
     Indication: B-cell lymphoma
     Dosage: ON 24/AUG/2022, DOSE LAST STUDY DRUG ADMIN PRIOR SAE IS 45 MG, START DATE OF MOST RECENT DOSE OF STU
     Route: 058
     Dates: start: 20220614
  2. POLATUZUMAB VEDOTIN [Suspect]
     Active Substance: POLATUZUMAB VEDOTIN
     Indication: B-cell lymphoma
     Dosage: DOSE LAST STUDY DRUG ADMIN PRIOR SAE IS 127 MG RECEIVED ON 24/AUG/2022.
     Route: 042
     Dates: start: 20220316
  3. RITUXIMAB [Suspect]
     Active Substance: RITUXIMAB
     Indication: B-cell lymphoma
     Dosage: ON 18/MAY/2022, DOSE LAST STUDY DRUG ADMIN PRIOR SAE IS 700 MG
     Route: 041
     Dates: start: 20220316
  4. METFORMIN [Concomitant]
     Active Substance: METFORMIN HYDROCHLORIDE
     Dosage: GIVEN FOR PROPHYLAXIS IS NO ;ONGOING: YES
     Route: 048
     Dates: start: 1995
  5. METFORMIN [Concomitant]
     Active Substance: METFORMIN HYDROCHLORIDE
     Dosage: GIVEN FOR PROPHYLAXIS IS NO ;ONGOING: YES
     Route: 048
     Dates: start: 20220621
  6. TAMSULOSIN [Concomitant]
     Active Substance: TAMSULOSIN
     Route: 048
     Dates: start: 1980
  7. CLOPIDOGREL [Concomitant]
     Active Substance: CLOPIDOGREL BISULFATE
     Route: 048
     Dates: start: 202010
  8. PERINDOPRIL [Concomitant]
     Active Substance: PERINDOPRIL
     Route: 048
     Dates: start: 202010
  9. ROSUVASTATIN [Concomitant]
     Active Substance: ROSUVASTATIN
     Route: 048
     Dates: start: 202010
  10. METOPROLOL [Concomitant]
     Active Substance: METOPROLOL
     Route: 048
     Dates: start: 202010
  11. POLYETHYLENE GLYCOL 3350 [Concomitant]
     Active Substance: POLYETHYLENE GLYCOL 3350
     Dosage: 1 TABLET
     Route: 048
     Dates: start: 20220309
  12. SENOKOT-S [Concomitant]
     Active Substance: DOCUSATE SODIUM\SENNOSIDES
     Dosage: 1 OTHER
     Route: 048
     Dates: start: 202104
  13. TYLENOL [Concomitant]
     Active Substance: ACETAMINOPHEN
     Route: 048
     Dates: start: 2008
  14. ALLOPURINOL [Concomitant]
     Active Substance: ALLOPURINOL
     Route: 048
     Dates: start: 20220312
  15. ALLOPURINOL [Concomitant]
     Active Substance: ALLOPURINOL
     Route: 048
     Dates: start: 20220611, end: 20220617
  16. ALLOPURINOL [Concomitant]
     Active Substance: ALLOPURINOL
     Route: 048
     Dates: start: 20220709
  17. FAMOTIDINE [Concomitant]
     Active Substance: FAMOTIDINE
     Route: 048
     Dates: start: 20220316
  18. VALACYCLOVIR HYDROCHLORIDE [Concomitant]
     Active Substance: VALACYCLOVIR HYDROCHLORIDE
     Route: 048
     Dates: start: 20220316
  19. METOCLOPRAMIDE [Concomitant]
     Active Substance: METOCLOPRAMIDE
     Route: 048
     Dates: start: 20220317
  20. SULFAMETHOXAZOLE\TRIMETHOPRIM [Concomitant]
     Active Substance: SULFAMETHOXAZOLE\TRIMETHOPRIM
     Dosage: 1 TABLET
     Route: 048
     Dates: start: 20200318
  21. CLARITIN [Concomitant]
     Active Substance: LORATADINE
     Route: 048
     Dates: start: 2005
  22. CLARITIN [Concomitant]
     Active Substance: LORATADINE
     Route: 048
     Dates: start: 20220427
  23. ACYCLOVIR [Concomitant]
     Active Substance: ACYCLOVIR
     Route: 048
     Dates: start: 20220427
  24. PAXLOVID [Concomitant]
     Active Substance: NIRMATRELVIR\RITONAVIR
     Route: 048
     Dates: start: 20220416
  25. PAXLOVID [Concomitant]
     Active Substance: NIRMATRELVIR\RITONAVIR
     Route: 048
     Dates: start: 20220616, end: 20220620
  26. APIXABAN [Concomitant]
     Active Substance: APIXABAN
     Route: 048
     Dates: start: 20220719, end: 20220828
  27. FILGRASTIM [Concomitant]
     Active Substance: FILGRASTIM
     Route: 058
     Dates: start: 20220807, end: 20220809
  28. FILGRASTIM [Concomitant]
     Active Substance: FILGRASTIM
     Route: 058
     Dates: start: 20220522, end: 20220524
  29. FILGRASTIM [Concomitant]
     Active Substance: FILGRASTIM
     Route: 058
     Dates: start: 20220617, end: 20220619
  30. COMBIVENT [Concomitant]
     Active Substance: ALBUTEROL SULFATE\IPRATROPIUM BROMIDE
     Dosage: 2 PUFF
     Route: 055
     Dates: start: 20220620
  31. ALBUTEROL [Concomitant]
     Active Substance: ALBUTEROL
     Dosage: 2 PUFF
     Route: 055
     Dates: start: 20220620
  32. ASPIRIN [Concomitant]
     Active Substance: ASPIRIN
     Route: 048
     Dates: start: 20220827
  33. ENOXAPARIN [Concomitant]
     Active Substance: ENOXAPARIN
     Dosage: 40 U
     Route: 058
     Dates: start: 20220827, end: 20220829
  34. BETAMETHASONE [Concomitant]
     Active Substance: BETAMETHASONE
     Route: 061
     Dates: start: 20220719, end: 20220823
  35. PREDNISONE [Concomitant]
     Active Substance: PREDNISONE
     Route: 048
     Dates: start: 20221116, end: 20221212
  36. PREDNISONE [Concomitant]
     Active Substance: PREDNISONE
     Route: 048
  37. RBC TRANSFUSION [Concomitant]
     Indication: Haemoglobin decreased
  38. LEVOPHED [Concomitant]
     Active Substance: NOREPINEPHRINE BITARTRATE
     Route: 042
     Dates: start: 20221106, end: 20221107
  39. MONTELUKAST [Concomitant]
     Active Substance: MONTELUKAST SODIUM
     Route: 048
     Dates: start: 20220613, end: 20220613
  40. TINZAPARIN [Concomitant]
     Active Substance: TINZAPARIN
     Dosage: 4500 U
     Route: 058
     Dates: start: 20220618, end: 20220626
  41. CEPACOL (CANADA) [Concomitant]
     Dosage: 1 TABLET
     Route: 048
     Dates: start: 20220618, end: 20220626
  42. IBUPROFEN [Concomitant]
     Active Substance: IBUPROFEN
     Route: 048
     Dates: start: 20220620, end: 20220626
  43. OXYGEN [Concomitant]
     Active Substance: OXYGEN
     Dosage: 3 OTHER
     Route: 055
     Dates: start: 20220618, end: 20220620
  44. DEXAMETHASONE [Concomitant]
     Active Substance: DEXAMETHASONE
     Route: 042
     Dates: start: 20220614, end: 20220614

REACTIONS (3)
  - COVID-19 pneumonia [Recovered/Resolved]
  - Streptococcal sepsis [Recovered/Resolved]
  - COVID-19 [Recovered/Resolved]

NARRATIVE: CASE EVENT DATE: 20220616
